FAERS Safety Report 9779419 (Version 3)
Quarter: 2014Q1

REPORT INFORMATION
  Report Type: Not Available
  Country: FR (occurrence: FR)
  Receive Date: 20131223
  Receipt Date: 20140212
  Transmission Date: 20141002
  Serious: No
  Sender: FDA-Public Use
  Company Number: FR-VIROPHARMA INCORPORATED-20131209CINRY5545

PATIENT
  Age: 55 Year
  Sex: Female
  Weight: 58.7 kg

DRUGS (4)
  1. CINRYZE (C1 ESTERASE INHIBITOR (HUMAN)) [Suspect]
     Indication: HEREDITARY ANGIOEDEMA
     Route: 042
     Dates: start: 20130709
  2. CINRYZE (C1 ESTERASE INHIBITOR (HUMAN)) [Suspect]
     Indication: PROPHYLAXIS
  3. PROPOLIS [Concomitant]
     Indication: THROAT IRRITATION
     Dosage: UNKNOWN
     Route: 048
     Dates: start: 20131113
  4. VITAMIN C [Concomitant]
     Indication: INFECTION PROPHYLAXIS
     Route: 048
     Dates: start: 201309

REACTIONS (2)
  - Liver function test abnormal [Not Recovered/Not Resolved]
  - Hyperlipidaemia [Not Recovered/Not Resolved]
